FAERS Safety Report 5495480-7 (Version None)
Quarter: 2007Q4

REPORT INFORMATION
  Report Type: 
  Country: None (occurrence: None)
  Receive Date: 20071023
  Receipt Date: 20071011
  Transmission Date: 20080405
  Serious: Yes (Hospitalization)
  Sender: FDA-Public Use
  Company Number: 2007S1005284

PATIENT
  Age: 63 Year
  Sex: Female
  Weight: 66.2252 kg

DRUGS (5)
  1. TRIAMTERENE/HCTZ CAPSULES, USP (37.5 MG) [Suspect]
     Indication: HYPERTENSION
     Dosage: 37.5 MG; DAILY; ORAL; 25 MG;DAILY; ORAL
     Route: 048
     Dates: start: 20070328, end: 20070718
  2. TRIAMTERENE/HCTZ CAPSULES, USP (37.5 MG) [Suspect]
     Indication: HYPERTENSION
     Dosage: 37.5 MG; DAILY; ORAL; 25 MG;DAILY; ORAL
     Route: 048
     Dates: start: 20070328, end: 20070718
  3. LIPITOR [Concomitant]
  4. SYNTHROID [Concomitant]
  5. LOTREL /01289101/ [Concomitant]

REACTIONS (7)
  - BLOOD POTASSIUM DECREASED [None]
  - CONDITION AGGRAVATED [None]
  - DIZZINESS [None]
  - DRUG HYPERSENSITIVITY [None]
  - FATIGUE [None]
  - IRRITABLE BOWEL SYNDROME [None]
  - REACTION TO DRUG EXCIPIENTS [None]
